FAERS Safety Report 25613088 (Version 2)
Quarter: 2025Q3

REPORT INFORMATION
  Report Type: Spontaneous
  Country: US (occurrence: US)
  Receive Date: 20250728
  Receipt Date: 20250825
  Transmission Date: 20251021
  Serious: No
  Sender: AMGEN
  Company Number: US-AMGEN-USASP2025144327

PATIENT
  Age: 74 Year
  Sex: Female

DRUGS (2)
  1. REPATHA [Suspect]
     Active Substance: EVOLOCUMAB
     Indication: Product used for unknown indication
     Route: 065
  2. ASPIRIN [Concomitant]
     Active Substance: ASPIRIN

REACTIONS (5)
  - Device difficult to use [Unknown]
  - Product communication issue [Unknown]
  - Eye disorder [Unknown]
  - Adverse drug reaction [Unknown]
  - Injection site haemorrhage [Unknown]

NARRATIVE: CASE EVENT DATE: 20250718
